FAERS Safety Report 8835127 (Version 7)
Quarter: 2019Q2

REPORT INFORMATION
  Report Type: Report from Study
  Country: CA (occurrence: CA)
  Receive Date: 20121011
  Receipt Date: 20190509
  Transmission Date: 20190711
  Serious: Yes (Other)
  Sender: FDA-Public Use
  Company Number: CA-ROCHE-775831

PATIENT
  Age: 47 Year
  Sex: Male
  Weight: 50 kg

DRUGS (14)
  1. OMEPRAZOLE. [Concomitant]
     Active Substance: OMEPRAZOLE
  2. ACTEMRA [Suspect]
     Active Substance: TOCILIZUMAB
     Route: 042
     Dates: start: 20140923
  3. FOLIC ACID. [Concomitant]
     Active Substance: FOLIC ACID
  4. ALLOPURINOL. [Concomitant]
     Active Substance: ALLOPURINOL
  5. ACTEMRA [Suspect]
     Active Substance: TOCILIZUMAB
     Route: 042
     Dates: start: 20110913
  6. ACTONEL [Concomitant]
     Active Substance: RISEDRONATE SODIUM
  7. ALTACE [Concomitant]
     Active Substance: RAMIPRIL
  8. ACTEMRA [Suspect]
     Active Substance: TOCILIZUMAB
     Route: 042
     Dates: start: 20111110
  9. METHOTREXATE. [Concomitant]
     Active Substance: METHOTREXATE
  10. ACTEMRA [Suspect]
     Active Substance: TOCILIZUMAB
     Indication: RHEUMATOID ARTHRITIS
     Route: 042
     Dates: start: 20110104
  11. OXYCONTIN [Concomitant]
     Active Substance: OXYCODONE HYDROCHLORIDE
  12. ACTEMRA [Suspect]
     Active Substance: TOCILIZUMAB
     Route: 042
     Dates: start: 20130402
  13. COUMADIN [Concomitant]
     Active Substance: WARFARIN SODIUM
  14. PREDNISONE. [Concomitant]
     Active Substance: PREDNISONE

REACTIONS (13)
  - Inguinal hernia [Recovering/Resolving]
  - Ill-defined disorder [Unknown]
  - Weight increased [Recovering/Resolving]
  - Sluggishness [Unknown]
  - Weight decreased [Unknown]
  - Flushing [Unknown]
  - Pharyngitis streptococcal [Recovered/Resolved]
  - Malaise [Unknown]
  - Pneumonia [Not Recovered/Not Resolved]
  - Hypotension [Unknown]
  - Femur fracture [Recovered/Resolved]
  - Nasopharyngitis [Unknown]
  - Migraine [Unknown]

NARRATIVE: CASE EVENT DATE: 201101
